FAERS Safety Report 6808726-7 (Version None)
Quarter: 2010Q2

REPORT INFORMATION
  Report Type: 
  Country: None (occurrence: None)
  Receive Date: 20100629
  Receipt Date: 20090807
  Transmission Date: 20101027
  Serious: No
  Sender: FDA-Public Use
  Company Number: US-PFIZER INC-2009252784

PATIENT
  Sex: Female
  Weight: 153 kg

DRUGS (17)
  1. ARTHROTEC [Suspect]
     Indication: ARTHRITIS
     Dosage: UNK
     Route: 048
     Dates: start: 20090805
  2. CYMBALTA [Suspect]
     Indication: DEPRESSION
     Dosage: 60 MG, 1X/DAY
     Route: 048
  3. CYMBALTA [Suspect]
     Indication: FIBROMYALGIA
  4. PLAVIX [Concomitant]
     Dosage: 75 MG, 1X/DAY
     Route: 048
  5. NEXIUM [Concomitant]
     Dosage: 40 MG, 2X/DAY
     Route: 048
  6. CLONAZEPAM [Concomitant]
     Dosage: 0.5 MG, 1X/DAY
     Route: 048
  7. ISOSORBIDE DINITRATE [Concomitant]
     Dosage: 60 MG, 1X/DAY
     Route: 048
  8. ASPIRIN [Concomitant]
     Dosage: 500 MG, 1X/DAY
     Route: 048
  9. BUPROPION HCL [Concomitant]
     Dosage: 150 MG, 2X/DAY
     Route: 048
  10. SYNTHROID [Concomitant]
     Dosage: 1000 UG, 1X/DAY
     Route: 048
  11. MULTI-VITAMINS [Concomitant]
     Dosage: UNK
     Route: 048
  12. FISH OIL [Concomitant]
     Dosage: 1000 MG, 1X/DAY
     Route: 048
  13. CALCIUM CARBONATE [Concomitant]
     Dosage: UNK
     Route: 048
  14. MUCUS RELIEF [Concomitant]
     Dosage: 400 MG, 3X/DAY
     Route: 048
  15. LANTUS [Concomitant]
     Dosage: 80 IU, 2X/DAY
  16. COZAAR [Concomitant]
     Dosage: 100 MG, 1X/DAY
     Route: 048
  17. DILTIAZEM [Concomitant]
     Dosage: 120 MG, 2X/DAY
     Route: 048

REACTIONS (2)
  - CONSTIPATION [None]
  - DIARRHOEA [None]
